FAERS Safety Report 8394894-5 (Version None)
Quarter: 2012Q2

REPORT INFORMATION
  Report Type: 
  Country: None (occurrence: None)
  Receive Date: 20120530
  Receipt Date: 20110314
  Transmission Date: 20120825
  Serious: Yes (Hospitalization)
  Sender: FDA-Public Use
  Company Number: US-GLAXOSMITHKLINE-A0918780A

PATIENT
  Age: 19 Year
  Sex: Female
  Weight: 51 kg

DRUGS (2)
  1. FLOLAN [Suspect]
     Indication: PULMONARY ARTERIAL HYPERTENSION
     Route: 065
     Dates: start: 20070313
  2. REVATIO [Concomitant]
     Indication: PRODUCT USED FOR UNKNOWN INDICATION
     Dosage: 80MG THREE TIMES PER DAY
     Route: 065
     Dates: start: 20070313

REACTIONS (2)
  - PAIN [None]
  - CHEST PAIN [None]
